FAERS Safety Report 17075370 (Version 1)
Quarter: 2019Q4

REPORT INFORMATION
  Report Type: Spontaneous
  Country: US (occurrence: US)
  Receive Date: 20191125
  Receipt Date: 20191125
  Transmission Date: 20200122
  Serious: No
  Sender: FDA-Public Use
  Company Number: None

PATIENT
  Age: 50 Year
  Sex: Female
  Weight: 60.75 kg

DRUGS (7)
  1. SEASONAL ALLERGY MEDS [Concomitant]
  2. INTRAROSA [Suspect]
     Active Substance: PRASTERONE
     Indication: VULVOVAGINAL DRYNESS
     Dosage: ?          QUANTITY:28 SUPPOSITORY(IES);?
     Route: 067
  3. PROGESTERONE CREAM [Concomitant]
     Active Substance: PROGESTERONE
  4. VITAMINS [Concomitant]
     Active Substance: VITAMINS
  5. VITAMIN D [Concomitant]
     Active Substance: VITAMIN D NOS
  6. FISH OIL [Concomitant]
     Active Substance: FISH OIL
  7. CALCIUM [Concomitant]
     Active Substance: CALCIUM

REACTIONS (2)
  - Hair growth abnormal [None]
  - Female reproductive tract disorder [None]

NARRATIVE: CASE EVENT DATE: 20191001
